FAERS Safety Report 21038005 (Version 1)
Quarter: 2022Q3

REPORT INFORMATION
  Report Type: Spontaneous
  Country: JP (occurrence: JP)
  Receive Date: 20220704
  Receipt Date: 20220704
  Transmission Date: 20221027
  Serious: Yes (Other)
  Sender: FDA-Public Use
  Company Number: JP-SUN PHARMACEUTICAL INDUSTRIES LTD-2022R1-341713

PATIENT
  Age: 32 Year
  Sex: Female

DRUGS (3)
  1. TEGRETOL [Interacting]
     Active Substance: CARBAMAZEPINE
     Indication: Bipolar disorder
     Dosage: UNK
     Route: 065
  2. DROSPIRENONE\ETHINYL ESTRADIOL [Interacting]
     Active Substance: DROSPIRENONE\ETHINYL ESTRADIOL
     Indication: Premenstrual syndrome
     Dosage: UNK
     Route: 065
  3. DROSPIRENONE\ETHINYL ESTRADIOL [Interacting]
     Active Substance: DROSPIRENONE\ETHINYL ESTRADIOL
     Indication: Dysmenorrhoea

REACTIONS (3)
  - Suicidal ideation [Unknown]
  - Drug interaction [Unknown]
  - Intermenstrual bleeding [Recovering/Resolving]
